FAERS Safety Report 7877435-8 (Version None)
Quarter: 2011Q4

REPORT INFORMATION
  Report Type: 
  Country: None (occurrence: None)
  Receive Date: 20111031
  Receipt Date: 20111021
  Transmission Date: 20120403
  Serious: Yes (Life-Threatening, Hospitalization, Other)
  Sender: FDA-Public Use
  Company Number: US-ASTRAZENECA-2011SE52726

PATIENT
  Age: 33 Year
  Sex: Male
  Weight: 96.2 kg

DRUGS (6)
  1. SEROQUEL [Suspect]
     Indication: BIPOLAR DISORDER
     Route: 048
     Dates: start: 20110823
  2. FLEXRIL [Concomitant]
     Indication: PAIN
  3. SEROQUEL [Suspect]
     Dosage: 100MG IN THE MORNING AND 300MG AT NIGHT
     Route: 048
  4. NEXIUM [Suspect]
     Indication: GASTROOESOPHAGEAL REFLUX DISEASE
     Route: 048
  5. QUANAPINE [Concomitant]
     Indication: ANXIETY
     Dosage: 0.5-1MG DAILY
  6. MOBIC [Concomitant]
     Indication: BACK PAIN

REACTIONS (7)
  - NAUSEA [None]
  - SUICIDE ATTEMPT [None]
  - DISORIENTATION [None]
  - FEELING DRUNK [None]
  - DEPRESSION [None]
  - DRY MOUTH [None]
  - FATIGUE [None]
